FAERS Safety Report 17288481 (Version 1)
Quarter: 2020Q1

REPORT INFORMATION
  Report Type: Report from Study
  Country: ZA (occurrence: ZA)
  Receive Date: 20200120
  Receipt Date: 20200120
  Transmission Date: 20200409
  Serious: Yes (Other)
  Sender: FDA-Public Use
  Company Number: ZA-ROCHE-2525240

PATIENT
  Age: 8 Year
  Sex: Female

DRUGS (7)
  1. MYCOPHENOLATE MOFETIL. [Suspect]
     Active Substance: MYCOPHENOLATE MOFETIL
     Indication: IMMUNOSUPPRESSION
     Route: 065
  2. FOLATE [Concomitant]
     Active Substance: FOLATE SODIUM
  3. FERROUS [IRON] [Concomitant]
     Route: 048
  4. POTASSIUM [Concomitant]
     Active Substance: POTASSIUM
  5. THIAMINE. [Concomitant]
     Active Substance: THIAMINE
  6. PREDNISONE. [Suspect]
     Active Substance: PREDNISONE
     Indication: IMMUNOSUPPRESSION
     Route: 065
  7. OMEPRAZOLE. [Concomitant]
     Active Substance: OMEPRAZOLE

REACTIONS (1)
  - Posterior reversible encephalopathy syndrome [Recovered/Resolved]
